FAERS Safety Report 9321169 (Version 1)
Quarter: 2013Q2

REPORT INFORMATION
  Report Type: Spontaneous
  Country: US (occurrence: None)
  Receive Date: 20130528
  Receipt Date: 20130528
  Transmission Date: 20140414
  Serious: Yes (Death)
  Sender: FDA-Public Use
  Company Number: 2012AP004436

PATIENT
  Age: 66 Year
  Sex: Female

DRUGS (1)
  1. FERRIPROX [Suspect]
     Indication: SUPERFICIAL SIDEROSIS OF CENTRAL NERVOUS SYSTEM
     Dosage: 2000 MG;5XW;PO
     Route: 048
     Dates: start: 20120227

REACTIONS (2)
  - Accident [None]
  - Fall [None]
